FAERS Safety Report 13735554 (Version 1)
Quarter: 2017Q3

REPORT INFORMATION
  Report Type: Spontaneous
  Country: US (occurrence: US)
  Receive Date: 20170709
  Receipt Date: 20170709
  Transmission Date: 20171127
  Serious: Yes (Hospitalization, Disabling)
  Sender: FDA-Public Use
  Company Number: None

PATIENT
  Age: 43 Year
  Sex: Female
  Weight: 60.75 kg

DRUGS (4)
  1. HYDROXYZINE [Concomitant]
     Active Substance: HYDROXYZINE HYDROCHLORIDE
  2. CLONAZEPAM. [Suspect]
     Active Substance: CLONAZEPAM
     Indication: PANIC ATTACK
     Dosage: ?          OTHER STRENGTH:MG;QUANTITY:1 TABLET(S);?
     Route: 048
     Dates: start: 20170206, end: 20170425
  3. ZOLPIDEM [Suspect]
     Active Substance: ZOLPIDEM\ZOLPIDEM TARTRATE
     Indication: INSOMNIA
     Dosage: ?          OTHER STRENGTH:MG;QUANTITY:1 TABLET(S);?
     Route: 048
     Dates: start: 20120701, end: 20170101
  4. CLONAZEPAM. [Suspect]
     Active Substance: CLONAZEPAM
     Indication: INSOMNIA
     Dosage: ?          OTHER STRENGTH:MG;QUANTITY:1 TABLET(S);?
     Route: 048
     Dates: start: 20170206, end: 20170425

REACTIONS (31)
  - Arthralgia [None]
  - Memory impairment [None]
  - Tinnitus [None]
  - Tremor [None]
  - Hormone level abnormal [None]
  - Intrusive thoughts [None]
  - Burning sensation [None]
  - Suicidal ideation [None]
  - Multiple fractures [None]
  - Social anxiety disorder [None]
  - Anxiety [None]
  - Visual impairment [None]
  - General physical health deterioration [None]
  - Cognitive disorder [None]
  - Akathisia [None]
  - Derealisation [None]
  - Weight decreased [None]
  - Tachycardia [None]
  - Vision blurred [None]
  - Myalgia [None]
  - Withdrawal syndrome [None]
  - Feeling abnormal [None]
  - Depersonalisation/derealisation disorder [None]
  - Dyskinesia [None]
  - Eye pain [None]
  - Insomnia [None]
  - Amnesia [None]
  - Agoraphobia [None]
  - Muscle twitching [None]
  - Depression [None]
  - Thinking abnormal [None]

NARRATIVE: CASE EVENT DATE: 20170206
